FAERS Safety Report 24593647 (Version 1)
Quarter: 2024Q4

REPORT INFORMATION
  Report Type: Spontaneous
  Country: US (occurrence: None)
  Receive Date: 20241108
  Receipt Date: 20241108
  Transmission Date: 20250114
  Serious: Yes (Hospitalization)
  Sender: Public
  Company Number: None

PATIENT
  Sex: Male

DRUGS (4)
  1. HUMIRA [Suspect]
     Active Substance: ADALIMUMAB
     Indication: Crohn^s disease
     Dosage: ? FREQ: INJECT ONE PEN UNDER SKIN EVERY TWO WEEKS.?
     Route: 058
     Dates: start: 20210202
  2. MULTIPLE VIT TAB [Concomitant]
  3. REGULOID POW ORIGINAL [Concomitant]
  4. VIT B COMPLX TAB/VIT C [Concomitant]

REACTIONS (2)
  - Colon cancer [None]
  - Therapy interrupted [None]
